FAERS Safety Report 17124989 (Version 2)
Quarter: 2020Q1

REPORT INFORMATION
  Report Type: Spontaneous
  Country: US (occurrence: US)
  Receive Date: 20191206
  Receipt Date: 20200224
  Transmission Date: 20200409
  Serious: Yes (Hospitalization)
  Sender: FDA-Public Use
  Company Number: US-VIFOR (INTERNATIONAL) INC.-VIT-2019-15470

PATIENT
  Age: 77 Year
  Sex: Male

DRUGS (20)
  1. ALLOPURINOL. [Concomitant]
     Active Substance: ALLOPURINOL
  2. METHOCARBAM [Concomitant]
     Active Substance: METHOCARBAMOL
  3. SODIUM BICARBONATE. [Concomitant]
     Active Substance: SODIUM BICARBONATE
  4. VITAMIN D3 [Concomitant]
     Active Substance: CHOLECALCIFEROL
  5. AMLODIPINE [Concomitant]
     Active Substance: AMLODIPINE BESYLATE
  6. METOPROLOL TAR [Concomitant]
     Active Substance: METOPROLOL TARTRATE
  7. CRESTOR [Concomitant]
     Active Substance: ROSUVASTATIN CALCIUM
  8. GLYBURIDE. [Concomitant]
     Active Substance: GLYBURIDE
  9. INDOMETHACIN. [Concomitant]
     Active Substance: INDOMETHACIN
  10. ASPIRIN. [Concomitant]
     Active Substance: ASPIRIN
  11. CALCITRIOL. [Concomitant]
     Active Substance: CALCITRIOL
  12. NIACIN ER [Concomitant]
     Active Substance: NIACIN
  13. MECLIZINE [Concomitant]
     Active Substance: MECLIZINE HYDROCHLORIDE
  14. CLOPIDOGREL [Concomitant]
     Active Substance: CLOPIDOGREL BISULFATE
  15. ISOSORBDIN [Concomitant]
  16. GINGKOBILOB [Concomitant]
  17. RANEXA [Concomitant]
     Active Substance: RANOLAZINE
  18. VELTASSA [Suspect]
     Active Substance: PATIROMER
     Indication: HYPERKALAEMIA
     Route: 048
     Dates: start: 20181017
  19. LISINOPRIL. [Concomitant]
     Active Substance: LISINOPRIL
  20. ESCITALOPRAM [Concomitant]
     Active Substance: ESCITALOPRAM OXALATE

REACTIONS (5)
  - Blood pressure abnormal [Not Recovered/Not Resolved]
  - Hemiplegia [Unknown]
  - Product dose omission [Not Recovered/Not Resolved]
  - Hemiparesis [Unknown]
  - Cerebral infarction [Unknown]

NARRATIVE: CASE EVENT DATE: 2019
